FAERS Safety Report 16981774 (Version 1)
Quarter: 2019Q4

REPORT INFORMATION
  Report Type: Spontaneous
  Country: FR (occurrence: FR)
  Receive Date: 20191101
  Receipt Date: 20191101
  Transmission Date: 20200122
  Serious: Yes (Other)
  Sender: FDA-Public Use
  Company Number: FR-ROCHE-2454532

PATIENT
  Age: 89 Year
  Sex: Male
  Weight: 71 kg

DRUGS (3)
  1. RITUXIMAB. [Suspect]
     Active Substance: RITUXIMAB
     Indication: WALDENSTROM^S MACROGLOBULINAEMIA
     Route: 042
     Dates: start: 20180903, end: 201812
  2. DEXAMETHASONE. [Suspect]
     Active Substance: DEXAMETHASONE
     Indication: WALDENSTROM^S MACROGLOBULINAEMIA
     Dosage: INCONNUE
     Route: 042
     Dates: start: 20180903, end: 201812
  3. CYCLOPHOSPHAMIDE. [Suspect]
     Active Substance: CYCLOPHOSPHAMIDE
     Indication: WALDENSTROM^S MACROGLOBULINAEMIA
     Route: 042
     Dates: start: 20180903, end: 201812

REACTIONS (2)
  - Conjunctivitis [Not Recovered/Not Resolved]
  - Eczema eyelids [Recovered/Resolved]

NARRATIVE: CASE EVENT DATE: 201904
